FAERS Safety Report 8298376-0 (Version None)
Quarter: 2012Q2

REPORT INFORMATION
  Report Type: 
  Country: None (occurrence: None)
  Receive Date: 20120419
  Receipt Date: 20120410
  Transmission Date: 20120825
  Serious: Yes (Death)
  Sender: FDA-Public Use
  Company Number: AU-ROCHE-1058905

PATIENT
  Sex: Male

DRUGS (6)
  1. STEROIDS - UNKNOWN TYPE [Concomitant]
  2. PLASMA EXCHANGE [Concomitant]
  3. MABTHERA [Suspect]
     Indication: ENCEPHALOPATHY
  4. METHYLPREDNISOLONE [Concomitant]
  5. AZATHIOPRINE [Concomitant]
  6. IMMUNE GLOBULIN IV NOS [Concomitant]

REACTIONS (1)
  - DEATH [None]
